FAERS Safety Report 9416220 (Version 2)
Quarter: 2013Q3

REPORT INFORMATION
  Report Type: Spontaneous
  Country: FR (occurrence: None)
  Receive Date: 20130718
  Receipt Date: 20130726
  Transmission Date: 20140515
  Serious: Yes (Life-Threatening)
  Sender: FDA-Public Use
  Company Number: SYM-2013-06427

PATIENT
  Age: 88 Year
  Sex: Male

DRUGS (13)
  1. FLAGYL [Suspect]
     Indication: PSEUDOMEMBRANOUS COLITIS
     Dosage: 2 UT, DAILY, ORAL
     Route: 048
     Dates: start: 20130530, end: 20130607
  2. ZYVOXID [Suspect]
     Indication: URINARY TRACT INFECTION
     Dosage: 600MG 2 IN 1 D INTRAVENOUS
     Route: 042
     Dates: start: 20130530, end: 20130531
  3. SEROPLEX [Suspect]
     Indication: PRODUCT USED FOR UNKNOWN INDICATION
     Route: 048
     Dates: start: 20130607
  4. AUGMENTIN (SPEKTRAMOX (CLAVULANATE POTASSIUM, AMOXICILLIN TRIHYDRATE) [Concomitant]
  5. LANTUS (INSULIN GLARGINE) (INSULIN GLARGINE) [Concomitant]
  6. PREVISCAN (FLUINDIONE) (FLUINDIONE) [Concomitant]
  7. PRAVASTATINE )PRAVASTATIN SODIUM) (PRAVASTATIN SODIUM) [Concomitant]
  8. CARDENSIEL (BISOPROLOL FUMARATE) (BISOPROLOL FUMARATE) [Concomitant]
  9. LASILIX (FUROSEMIDE) (FUROSEMIDE) [Concomitant]
  10. INEXIUM (ESOMEPRAZOLE) (ESOMEPRAZOLE) [Concomitant]
  11. LEVOTHYROX (LEVOTHYROXINE SODIUM) (LEVOTHYROXINE SODIUM) [Concomitant]
  12. ECONAZOLE (ECONAZOLE) (ECONAZOLE) [Concomitant]
  13. AUGMENTIN (SPEKTRAMOX) (CLAVULANATE POTASSIUM, AMOXICILLIN TRIHYDRATE) [Concomitant]

REACTIONS (9)
  - Clonus [None]
  - Tremor [None]
  - Encephalopathy [None]
  - Clostridium test positive [None]
  - Confusional state [None]
  - Overdose [None]
  - Hepatic failure [None]
  - Anxiety [None]
  - Thrombocytopenia [None]
